FAERS Safety Report 6496770-1 (Version None)
Quarter: 2009Q4

REPORT INFORMATION
  Report Type: 
  Country: None (occurrence: None)
  Receive Date: 20091125
  Receipt Date: 20090410
  Transmission Date: 20100525
  Serious: Yes (Other)
  Sender: FDA-Public Use
  Company Number: 2009BH005916

PATIENT
  Age: 82 Year
  Sex: Male
  Weight: 69.6725 kg

DRUGS (1)
  1. DIANEAL [Suspect]
     Indication: PERITONEAL DIALYSIS
     Dosage: 9 L; EVERY DAY; IP
     Route: 033
     Dates: start: 20061219

REACTIONS (2)
  - PERITONITIS BACTERIAL [None]
  - PYREXIA [None]
